FAERS Safety Report 5521519-6 (Version None)
Quarter: 2007Q4

REPORT INFORMATION
  Report Type: 
  Country: None (occurrence: None)
  Receive Date: 20071119
  Receipt Date: 20071119
  Transmission Date: 20080405
  Serious: No
  Sender: FDA-Public Use
  Company Number: None

PATIENT
  Age: 42 Year
  Sex: Male
  Weight: 82.5547 kg

DRUGS (2)
  1. LEVAQUIN [Suspect]
     Indication: RESPIRATORY TRACT INFECTION
     Dosage: ONE TAB ONCE A DAY
     Dates: start: 20071101, end: 20071110
  2. QUINOLONE ANTIBIOTIC [Suspect]

REACTIONS (2)
  - ARTHRALGIA [None]
  - GAIT DISTURBANCE [None]
